FAERS Safety Report 21472925 (Version 1)
Quarter: 2022Q4

REPORT INFORMATION
  Report Type: Spontaneous
  Country: DE (occurrence: DE)
  Receive Date: 20221018
  Receipt Date: 20221018
  Transmission Date: 20230113
  Serious: Yes (Other)
  Sender: FDA-Public Use
  Company Number: DE-NOVARTISPH-NVSC2022DE231191

PATIENT
  Sex: Female

DRUGS (1)
  1. IBUPROFEN [Suspect]
     Active Substance: IBUPROFEN
     Indication: Rheumatoid arthritis
     Dosage: 400-2400 MG, QD
     Route: 065

REACTIONS (2)
  - Premature delivery [Unknown]
  - Maternal exposure during pregnancy [Unknown]
